FAERS Safety Report 4340675-9 (Version None)
Quarter: 2004Q2

REPORT INFORMATION
  Report Type: 
  Country: None (occurrence: None)
  Receive Date: 20040413
  Receipt Date: 20040329
  Transmission Date: 20050107
  Serious: Yes (Hospitalization)
  Sender: FDA-Public Use
  Company Number: 195083

PATIENT
  Age: 22 Year
  Sex: Female
  Weight: 95.2554 kg

DRUGS (1)
  1. AVONEX [Suspect]
     Indication: MULTIPLE SCLEROSIS
     Dosage: 30 MCG QW IM
     Route: 030
     Dates: start: 20030701, end: 20040201

REACTIONS (19)
  - BALANCE DISORDER [None]
  - BLOOD PRESSURE INCREASED [None]
  - CHEST PAIN [None]
  - CHOKING [None]
  - DIZZINESS [None]
  - DYSPHAGIA [None]
  - EAR INFECTION [None]
  - FACIAL PALSY [None]
  - FAECAL INCONTINENCE [None]
  - HEART RATE INCREASED [None]
  - INFLUENZA LIKE ILLNESS [None]
  - MULTIPLE SCLEROSIS [None]
  - PARAPLEGIA [None]
  - PNEUMONIA [None]
  - RASH [None]
  - SWELLING [None]
  - URINARY INCONTINENCE [None]
  - URINARY TRACT INFECTION [None]
  - WEIGHT DECREASED [None]
